FAERS Safety Report 8350005-3 (Version None)
Quarter: 2012Q2

REPORT INFORMATION
  Report Type: 
  Country: None (occurrence: None)
  Receive Date: 20120510
  Receipt Date: 20120510
  Transmission Date: 20120825
  Serious: Yes (Other)
  Sender: FDA-Public Use
  Company Number: DK-ABBOTT-12P-044-0902832-00

PATIENT
  Sex: Male
  Weight: 83 kg

DRUGS (2)
  1. HUMIRA [Suspect]
     Indication: PSORIATIC ARTHROPATHY
     Dates: start: 20100930, end: 20111101
  2. HUMIRA [Suspect]
     Indication: PSORIASIS
     Dates: start: 20111124, end: 20120123

REACTIONS (3)
  - NEUROLOGICAL SYMPTOM [None]
  - VISION BLURRED [None]
  - DIZZINESS [None]
